FAERS Safety Report 5999467-7 (Version None)
Quarter: 2008Q4

REPORT INFORMATION
  Report Type: 
  Country: None (occurrence: None)
  Receive Date: 20081211
  Receipt Date: 20081211
  Transmission Date: 20090506
  Serious: Yes (Hospitalization, Other)
  Sender: FDA-Public Use
  Company Number: None

PATIENT
  Age: 69 Year
  Sex: Male
  Weight: 106.5953 kg

DRUGS (2)
  1. ISOSORBIDE MONONITRATE [Suspect]
     Indication: CARDIAC DISORDER
     Dosage: 1 TABLET DAILY ORAL
     Route: 048
  2. INSULIN [Concomitant]

REACTIONS (2)
  - MYOCARDIAL INFARCTION [None]
  - PRODUCT QUALITY ISSUE [None]
